FAERS Safety Report 24605751 (Version 2)
Quarter: 2025Q1

REPORT INFORMATION
  Report Type: Report from Study
  Country: US (occurrence: US)
  Receive Date: 20241111
  Receipt Date: 20250108
  Transmission Date: 20250408
  Serious: Yes (Other)
  Sender: ABBVIE
  Company Number: US-ABBVIE-5990369

PATIENT
  Sex: Male

DRUGS (1)
  1. RINVOQ [Suspect]
     Active Substance: UPADACITINIB
     Indication: Rheumatoid arthritis
     Route: 048
     Dates: start: 20220609

REACTIONS (5)
  - Keratomileusis [Not Recovered/Not Resolved]
  - Lacrimation increased [Unknown]
  - Eyelid ptosis [Unknown]
  - Eye disorder [Unknown]
  - Dry eye [Not Recovered/Not Resolved]
